FAERS Safety Report 4473379-2 (Version None)
Quarter: 2004Q4

REPORT INFORMATION
  Report Type: 
  Country: None (occurrence: None)
  Receive Date: 20041008
  Receipt Date: 20040930
  Transmission Date: 20050328
  Serious: Yes (Other)
  Sender: FDA-Public Use
  Company Number: 6010862

PATIENT
  Age: 31 Year
  Sex: Female

DRUGS (2)
  1. BISOPROLOL FUMARATE [Suspect]
     Indication: MITRAL VALVE PROLAPSE
     Dosage: 1,00 DOSAGE FORMS (1 DOSAGE FORMS,1 IN 1 D) ORAL
     Route: 048
  2. MACROLIDES [Suspect]

REACTIONS (5)
  - ANGIONEUROTIC OEDEMA [None]
  - HYPERSENSITIVITY [None]
  - REACTION TO DRUG EXCIPIENT [None]
  - TACHYCARDIA [None]
  - URTICARIA GENERALISED [None]
